FAERS Safety Report 6340374-8 (Version None)
Quarter: 2009Q3

REPORT INFORMATION
  Report Type: 
  Country: None (occurrence: None)
  Receive Date: 20090904
  Receipt Date: 20090825
  Transmission Date: 20100115
  Serious: Yes (Hospitalization, Other)
  Sender: FDA-Public Use
  Company Number: US-BIOGENIDEC-2009BI022051

PATIENT
  Sex: Male
  Weight: 88 kg

DRUGS (15)
  1. AVONEX [Suspect]
     Indication: MULTIPLE SCLEROSIS
     Route: 030
  2. AVONEX [Suspect]
     Route: 030
     Dates: start: 20080201
  3. GABAPENTIN [Concomitant]
     Indication: NEURALGIA
  4. DIBENZYLINE [Concomitant]
  5. COREG [Concomitant]
  6. BENICAR [Concomitant]
  7. ENABLEX [Concomitant]
  8. FLOMAX [Concomitant]
  9. CYMBALTA [Concomitant]
  10. MULTIPLE VITAMIN [Concomitant]
  11. VITAMIN D [Concomitant]
  12. NAPROXEN [Concomitant]
  13. SONATA [Concomitant]
  14. OMEPRAZOLE [Concomitant]
  15. MIRALAX [Concomitant]

REACTIONS (25)
  - ADRENAL NEOPLASM [None]
  - ALANINE AMINOTRANSFERASE INCREASED [None]
  - ASPARTATE AMINOTRANSFERASE INCREASED [None]
  - ASTHENIA [None]
  - CHILLS [None]
  - CONSTIPATION [None]
  - DEHYDRATION [None]
  - DEPRESSION [None]
  - DIARRHOEA [None]
  - DYSPNOEA [None]
  - EYE PAIN [None]
  - FATIGUE [None]
  - HYPERTENSION [None]
  - INCONTINENCE [None]
  - MULTIPLE SCLEROSIS RELAPSE [None]
  - NEURALGIA [None]
  - NEUROGENIC BLADDER [None]
  - NOCTURIA [None]
  - PAIN [None]
  - PYREXIA [None]
  - SWELLING [None]
  - TINNITUS [None]
  - VISION BLURRED [None]
  - VOMITING [None]
  - WEIGHT INCREASED [None]
